FAERS Safety Report 25583482 (Version 1)
Quarter: 2025Q3

REPORT INFORMATION
  Report Type: Spontaneous
  Country: US (occurrence: US)
  Receive Date: 20250721
  Receipt Date: 20250721
  Transmission Date: 20251021
  Serious: No
  Sender: SANOFI AVENTIS
  Company Number: US-SA-2025SA203756

PATIENT
  Age: 59 Year
  Sex: Male
  Weight: 135 kg

DRUGS (34)
  1. DUPIXENT [Suspect]
     Active Substance: DUPILUMAB
     Indication: Asthma
     Dosage: 300 MG, QOW
     Route: 058
  2. BOTOX [Concomitant]
     Active Substance: ONABOTULINUMTOXINA
  3. IRBESARTAN [Concomitant]
     Active Substance: IRBESARTAN
  4. VASCEPA [Concomitant]
     Active Substance: ICOSAPENT ETHYL
  5. ATORVASTATIN CALCIUM [Concomitant]
     Active Substance: ATORVASTATIN CALCIUM
  6. DRONABINOL [Concomitant]
     Active Substance: DRONABINOL
  7. ONDANSETRON HYDROCHLORIDE [Concomitant]
     Active Substance: ONDANSETRON HYDROCHLORIDE
  8. TADALAFIL [Concomitant]
     Active Substance: TADALAFIL
  9. JARDIANCE [Concomitant]
     Active Substance: EMPAGLIFLOZIN
  10. DIHYDROERGOTAMINE MESYLATE [Concomitant]
     Active Substance: DIHYDROERGOTAMINE MESYLATE
  11. METOCLOPRAMIDE HYDROCHLORIDE [Concomitant]
     Active Substance: METOCLOPRAMIDE HYDROCHLORIDE
  12. SPRAVATO [Concomitant]
     Active Substance: ESKETAMINE
  13. SEMGLEE (INSULIN GLARGINE-YFGN) [Concomitant]
     Active Substance: INSULIN GLARGINE-YFGN
  14. REYVOW [Concomitant]
     Active Substance: LASMIDITAN
  15. DOXYCYCLINE HYCLATE [Concomitant]
     Active Substance: DOXYCYCLINE HYCLATE
  16. TRELEGY ELLIPTA [Concomitant]
     Active Substance: FLUTICASONE FUROATE\UMECLIDINIUM BROMIDE\VILANTEROL TRIFENATATE
  17. CREON [Concomitant]
     Active Substance: PANCRELIPASE AMYLASE\PANCRELIPASE LIPASE\PANCRELIPASE PROTEASE
  18. NOVOLOG [Concomitant]
     Active Substance: INSULIN ASPART
  19. GABAPENTIN [Concomitant]
     Active Substance: GABAPENTIN
  20. FLUTICASONE PROPIONATE [Concomitant]
     Active Substance: FLUTICASONE PROPIONATE
  21. VITAMIN D3 [Concomitant]
     Active Substance: CHOLECALCIFEROL
  22. SUMATRIPTAN SUCCINATE [Concomitant]
     Active Substance: SUMATRIPTAN SUCCINATE
  23. DESCOVY [Concomitant]
     Active Substance: EMTRICITABINE\TENOFOVIR ALAFENAMIDE FUMARATE
  24. CARVEDILOL [Concomitant]
     Active Substance: CARVEDILOL
  25. NABUMETONE [Concomitant]
     Active Substance: NABUMETONE
  26. DORZOLAMIDE HYDROCHLORIDE [Concomitant]
     Active Substance: DORZOLAMIDE HYDROCHLORIDE
  27. PROTONIX [Concomitant]
     Active Substance: PANTOPRAZOLE SODIUM
  28. METFORMIN HYDROCHLORIDE [Concomitant]
     Active Substance: METFORMIN HYDROCHLORIDE
  29. CLONAZEPAM [Concomitant]
     Active Substance: CLONAZEPAM
  30. AZELASTINE HYDROCHLORIDE\FLUTICASONE PROPIONATE [Concomitant]
     Active Substance: AZELASTINE HYDROCHLORIDE\FLUTICASONE PROPIONATE
  31. CAPLYTA [Concomitant]
     Active Substance: LUMATEPERONE
  32. AJOVY [Concomitant]
     Active Substance: FREMANEZUMAB-VFRM
  33. AIRSUPRA [BUDESONIDE;SALBUTAMOL] [Concomitant]
  34. NURTEC ODT [Concomitant]
     Active Substance: RIMEGEPANT SULFATE

REACTIONS (1)
  - Nasopharyngitis [Unknown]
